FAERS Safety Report 25252612 (Version 1)
Quarter: 2025Q2

REPORT INFORMATION
  Report Type: Spontaneous
  Country: US (occurrence: US)
  Receive Date: 20250429
  Receipt Date: 20250429
  Transmission Date: 20250716
  Serious: No
  Sender: VERITY PHARMACEUTICALS INC.
  Company Number: US-VER-202400379

PATIENT

DRUGS (1)
  1. TRELSTAR [Suspect]
     Active Substance: TRIPTORELIN PAMOATE
     Indication: Breast cancer
     Route: 065

REACTIONS (1)
  - Off label use [Unknown]
